FAERS Safety Report 10036491 (Version 3)
Quarter: 2014Q1

REPORT INFORMATION
  Report Type: Spontaneous
  Country: IT (occurrence: IT)
  Receive Date: 20140326
  Receipt Date: 20140331
  Transmission Date: 20141002
  Serious: Yes (Death, Hospitalization)
  Sender: FDA-Public Use
  Company Number: IT-ROCHE-1340149

PATIENT
  Age: 64 Year
  Sex: Female

DRUGS (5)
  1. MABTHERA [Suspect]
     Indication: B-CELL LYMPHOMA
     Route: 041
     Dates: start: 20131121, end: 20131219
  2. CYCLOPHOSPHAMIDE [Suspect]
     Indication: NON-HODGKIN^S LYMPHOMA
     Route: 041
     Dates: start: 20131121, end: 20131219
  3. VINCRISTINE [Suspect]
     Indication: NON-HODGKIN^S LYMPHOMA
     Route: 040
     Dates: start: 20131121, end: 20131219
  4. DELTACORTENE [Suspect]
     Indication: NON-HODGKIN^S LYMPHOMA
     Route: 048
     Dates: start: 20131121, end: 20131219
  5. MYOCET [Suspect]
     Indication: NON-HODGKIN^S LYMPHOMA
     Route: 042
     Dates: start: 20131121, end: 20131219

REACTIONS (2)
  - Pneumonitis [Fatal]
  - Pyrexia [Fatal]
